FAERS Safety Report 21294596 (Version 2)
Quarter: 2022Q3

REPORT INFORMATION
  Report Type: Spontaneous
  Country: US (occurrence: US)
  Receive Date: 20220905
  Receipt Date: 20220910
  Transmission Date: 20221027
  Serious: Yes (Hospitalization, Other)
  Sender: FDA-Public Use
  Company Number: US-009507513-2209USA000225

PATIENT
  Age: 77 Year
  Sex: Male

DRUGS (1)
  1. KEYTRUDA [Suspect]
     Active Substance: PEMBROLIZUMAB
     Indication: Angiosarcoma
     Dosage: 200 MG EVERY 3 WEEKS, ROUTE OF ADMINISTRATION: INFUSION

REACTIONS (5)
  - Incontinence [Unknown]
  - Feeling abnormal [Unknown]
  - Renal failure [Unknown]
  - Fatigue [Unknown]
  - Product use in unapproved indication [Unknown]
